FAERS Safety Report 5191916-X (Version None)
Quarter: 2006Q4

REPORT INFORMATION
  Report Type: 
  Country: None (occurrence: None)
  Receive Date: 20061227
  Receipt Date: 20061117
  Transmission Date: 20070319
  Serious: Yes (Life-Threatening, Other)
  Sender: FDA-Public Use
  Company Number: JP-BRACCO-BRO-010932

PATIENT
  Sex: Female
  Weight: 56 kg

DRUGS (13)
  1. IOPAMIRON [Suspect]
     Indication: COMPUTERISED TOMOGRAM CORONARY ARTERY
     Dosage: 4 ML/SEC
     Route: 042
     Dates: start: 20061109, end: 20061109
  2. SELOKEN                            /00376902/ [Interacting]
     Route: 048
     Dates: start: 20061109, end: 20061109
  3. NITROPEN [Interacting]
     Route: 060
     Dates: start: 20061109, end: 20061109
  4. ZANTAC [Concomitant]
     Route: 050
     Dates: start: 20010911
  5. SLOW-K [Concomitant]
     Route: 066
     Dates: start: 20010911
  6. CALSLOT [Concomitant]
     Route: 050
     Dates: start: 20050419
  7. BUFFERIN                           /00009201/ [Concomitant]
     Route: 050
     Dates: start: 20050913
  8. APLACE [Concomitant]
     Route: 050
     Dates: start: 20010911
  9. GASMOTIN [Concomitant]
     Route: 050
     Dates: start: 20010911
  10. LAC B [Concomitant]
     Route: 050
     Dates: start: 20040512
  11. LIPITOR                            /01326102/ [Concomitant]
     Route: 050
     Dates: start: 20010911
  12. CONSTAN [Concomitant]
     Route: 050
  13. ANTIBIOTIC [Concomitant]
     Route: 050

REACTIONS (12)
  - ANAPHYLACTIC SHOCK [None]
  - BLOOD PRESSURE DECREASED [None]
  - DEPRESSED LEVEL OF CONSCIOUSNESS [None]
  - DRUG ERUPTION [None]
  - GASTROINTESTINAL HAEMORRHAGE [None]
  - HERPES ZOSTER [None]
  - PANCREATITIS ACUTE [None]
  - PNEUMONIA [None]
  - RESPIRATORY FAILURE [None]
  - SEPSIS [None]
  - SHOCK [None]
  - UPPER GASTROINTESTINAL HAEMORRHAGE [None]
